FAERS Safety Report 5334713-4 (Version None)
Quarter: 2007Q2

REPORT INFORMATION
  Report Type: 
  Country: None (occurrence: None)
  Receive Date: 20070521
  Receipt Date: 20070515
  Transmission Date: 20071010
  Serious: Yes (Death)
  Sender: FDA-Public Use
  Company Number: 2007SP005306

PATIENT
  Age: 47 Year
  Sex: Female
  Weight: 59.4212 kg

DRUGS (12)
  1. PEG-INTRON [Suspect]
     Indication: HEPATITIS C
     Dosage: 80 MCG; SC
     Route: 058
     Dates: start: 20070307
  2. INSULIN [Concomitant]
  3. REBETRON [Concomitant]
  4. ASPIRIN [Concomitant]
  5. PLAVIX [Concomitant]
  6. FLEXERIL [Concomitant]
  7. ZOVIRAX [Concomitant]
  8. NORVASC [Concomitant]
  9. CELEXA [Concomitant]
  10. SYNTHROID [Concomitant]
  11. BUSPIRONE [Concomitant]
  12. ENALAPRIL MALEATE [Concomitant]

REACTIONS (1)
  - CATHETER THROMBOSIS [None]
